FAERS Safety Report 4665075-3 (Version None)
Quarter: 2005Q2

REPORT INFORMATION
  Report Type: 
  Country: None (occurrence: None)
  Receive Date: 20050517
  Receipt Date: 20050429
  Transmission Date: 20051028
  Serious: Yes (Death)
  Sender: FDA-Public Use
  Company Number: FR_050406344

PATIENT
  Age: 25 Year
  Sex: Female
  Weight: 51 kg

DRUGS (8)
  1. ZYPREXA [Suspect]
     Indication: BRIEF PSYCHOTIC DISORDER WITH MARKED STRESSORS
     Dosage: 3 DSG FORM DAY
     Dates: start: 20040201
  2. PROZAC [Concomitant]
  3. METHADONE HCL [Concomitant]
  4. TERCIAN (CYAMEMAZINE) [Concomitant]
  5. IMOVANE (ZOPICLONE) [Concomitant]
  6. LYSANXIA (PRAZEPAM) [Concomitant]
  7. INTERFERON [Concomitant]
  8. RIBAVIRIN [Concomitant]

REACTIONS (2)
  - DRUG DOSE OMISSION [None]
  - DRUG WITHDRAWAL SYNDROME [None]
